FAERS Safety Report 5599822-3 (Version None)
Quarter: 2008Q1

REPORT INFORMATION
  Report Type: 
  Country: None (occurrence: None)
  Receive Date: 20080123
  Receipt Date: 20071113
  Transmission Date: 20080703
  Serious: Yes (Life-Threatening)
  Sender: FDA-Public Use
  Company Number: JP-ASTRAZENECA-2007AP05387

PATIENT
  Age: 17941 Day
  Sex: Male
  Weight: 58 kg

DRUGS (25)
  1. FOSCAVIR [Suspect]
     Indication: HIV INFECTION
     Route: 041
     Dates: start: 20061123, end: 20061208
  2. FOSCAVIR [Suspect]
     Indication: ENCEPHALITIS CYTOMEGALOVIRUS
     Route: 041
     Dates: start: 20061123, end: 20061208
  3. FOSCAVIR [Suspect]
     Route: 041
     Dates: start: 20061209, end: 20061230
  4. FOSCAVIR [Suspect]
     Route: 041
     Dates: start: 20061209, end: 20061230
  5. FOSCAVIR [Suspect]
     Route: 041
     Dates: start: 20070120, end: 20070201
  6. FOSCAVIR [Suspect]
     Route: 041
     Dates: start: 20070120, end: 20070201
  7. VALGANCICLOVIR HCL [Suspect]
     Indication: ENCEPHALITIS CYTOMEGALOVIRUS
     Route: 048
     Dates: start: 20061123, end: 20061208
  8. VALGANCICLOVIR HCL [Suspect]
     Route: 048
     Dates: start: 20061209
  9. EPZICOM [Suspect]
     Indication: HIV INFECTION
     Route: 048
     Dates: start: 20061212, end: 20070319
  10. FUNGIZONE [Concomitant]
     Indication: ORAL CANDIDIASIS
     Route: 048
     Dates: start: 20061103, end: 20070220
  11. ZITHROMAX [Concomitant]
     Indication: OPPORTUNISTIC INFECTION PROPHYLAXIS
     Route: 048
     Dates: start: 20061106
  12. KALETRA [Concomitant]
     Indication: HIV INFECTION
     Route: 048
     Dates: start: 20061114, end: 20070223
  13. GASTER D [Concomitant]
     Indication: PROPHYLAXIS AGAINST GASTROINTESTINAL ULCER
     Route: 048
     Dates: start: 20061116, end: 20070306
  14. UNKNOWN DRUG [Concomitant]
     Indication: PNEUMOCYSTIS JIROVECI PNEUMONIA
     Dates: start: 20061122
  15. COMBIVIR [Concomitant]
     Indication: HIV INFECTION
     Route: 048
     Dates: start: 20061114, end: 20061211
  16. NEUTROGIN [Concomitant]
     Indication: LEUKOPENIA
     Dates: start: 20061204, end: 20061206
  17. NEUTROGIN [Concomitant]
     Dates: start: 20061209, end: 20061210
  18. NEUTROGIN [Concomitant]
     Dates: start: 20061225, end: 20061226
  19. NEUTROGIN [Concomitant]
     Dates: start: 20070112, end: 20070114
  20. NEUTROGIN [Concomitant]
     Dates: start: 20070119, end: 20070121
  21. NEUTROGIN [Concomitant]
     Dates: start: 20070126, end: 20070128
  22. NEUTROGIN [Concomitant]
     Dates: start: 20070203, end: 20070205
  23. NEUTROGIN [Concomitant]
     Dates: start: 20070217, end: 20070220
  24. MUCOSTA [Concomitant]
     Indication: PROPHYLAXIS
     Route: 048
     Dates: start: 20070116, end: 20070228
  25. DIFLUCAN [Concomitant]
     Indication: OESOPHAGEAL CANDIDIASIS
     Dates: start: 20070121, end: 20070127

REACTIONS (3)
  - BONE MARROW FAILURE [None]
  - C-REACTIVE PROTEIN INCREASED [None]
  - PANCYTOPENIA [None]
